FAERS Safety Report 7523482-5 (Version None)
Quarter: 2011Q2

REPORT INFORMATION
  Report Type: 
  Country: None (occurrence: None)
  Receive Date: 20110603
  Receipt Date: 20100116
  Transmission Date: 20111010
  Serious: Yes (Other)
  Sender: FDA-Public Use
  Company Number: US-BAYER-201011400NA

PATIENT
  Age: 59 Year
  Sex: Female
  Weight: 76.19 kg

DRUGS (4)
  1. TRASYLOL [Suspect]
     Indication: CORONARY ARTERY BYPASS
     Dosage: . 200ML LOADING DOSE FOLLOWED BY 50 ML/HOUR
     Route: 042
     Dates: start: 20041209, end: 20041209
  2. NITROGLYCERIN [Concomitant]
  3. DIOVAN [Concomitant]
  4. TOPROL-XL [Concomitant]

REACTIONS (14)
  - UNEVALUABLE EVENT [None]
  - RENAL IMPAIRMENT [None]
  - RENAL INJURY [None]
  - ANXIETY [None]
  - FEAR [None]
  - DEPRESSION [None]
  - INJURY [None]
  - CEREBROVASCULAR ACCIDENT [None]
  - RENAL FAILURE [None]
  - ORGAN FAILURE [None]
  - PAIN [None]
  - CARDIAC DISORDER [None]
  - ANHEDONIA [None]
  - MYOCARDIAL INFARCTION [None]
